FAERS Safety Report 8747414 (Version 4)
Quarter: 2014Q2

REPORT INFORMATION
  Report Type: Report from Study
  Country: US (occurrence: US)
  Receive Date: 20120827
  Receipt Date: 20140106
  Transmission Date: 20141212
  Serious: Yes (Hospitalization)
  Sender: FDA-Public Use
  Company Number: US-ALEXION PHARMACEUTICALS INC.-A201201570

PATIENT
  Age: 72 Year
  Sex: Male
  Weight: 79 kg

DRUGS (13)
  1. SOLIRIS [Suspect]
     Indication: HAEMOLYTIC URAEMIC SYNDROME
     Dosage: 300 MG, QW
     Route: 042
     Dates: start: 201112
  2. SOLIRIS [Suspect]
     Dosage: 1200 MG, Q2W
     Route: 042
     Dates: end: 20120808
  3. SOLIRIS [Suspect]
     Dosage: 900 MG, QW
     Route: 042
     Dates: start: 20120817
  4. FISH OIL [Concomitant]
     Dosage: UNK
  5. NORVASC [Concomitant]
     Indication: HYPERTENSION
     Dosage: UNK
  6. PRILOSEC [Concomitant]
     Indication: GASTRITIS PROPHYLAXIS
     Dosage: UNK
  7. ADVAIR DISKUS [Concomitant]
     Indication: CHRONIC OBSTRUCTIVE PULMONARY DISEASE
     Dosage: UNK
  8. LASIX [Concomitant]
     Indication: HAEMOLYTIC URAEMIC SYNDROME
     Dosage: UNK
  9. DUONEB [Concomitant]
     Indication: CHRONIC OBSTRUCTIVE PULMONARY DISEASE
     Dosage: UNK
  10. ASA [Concomitant]
     Indication: PROPHYLAXIS
     Dosage: 81 MG, UNK
  11. CALCIUM [Concomitant]
     Indication: SUPPLEMENTATION THERAPY
     Dosage: UNK
  12. REMERON [Concomitant]
     Indication: SLEEP DISORDER
     Dosage: UNK
  13. ATIVAN [Concomitant]
     Indication: ANXIETY
     Dosage: UNK

REACTIONS (4)
  - Haemolytic uraemic syndrome [Recovered/Resolved]
  - Condition aggravated [Recovered/Resolved]
  - Dyspnoea [Not Recovered/Not Resolved]
  - Incorrect dose administered [Unknown]
